FAERS Safety Report 5972665-4 (Version None)
Quarter: 2008Q4

REPORT INFORMATION
  Report Type: 
  Country: None (occurrence: None)
  Receive Date: 20081201
  Receipt Date: 20081117
  Transmission Date: 20090506
  Serious: Yes (Other)
  Sender: FDA-Public Use
  Company Number: US-JNJFOC-20081104645

PATIENT
  Age: 57 Year
  Sex: Male
  Weight: 80.74 kg

DRUGS (2)
  1. ULTRAM [Suspect]
     Indication: CAUDA EQUINA SYNDROME
     Route: 048
  2. TRAMADOL HYDROCHLORIDE [Suspect]
     Indication: CAUDA EQUINA SYNDROME
     Route: 065

REACTIONS (1)
  - DEAFNESS [None]
